FAERS Safety Report 6838723-7 (Version None)
Quarter: 2010Q3

REPORT INFORMATION
  Report Type: 
  Country: None (occurrence: None)
  Receive Date: 20100713
  Receipt Date: 20070606
  Transmission Date: 20110219
  Serious: No
  Sender: FDA-Public Use
  Company Number: US-PFIZER INC-2007038296

PATIENT
  Sex: Female
  Weight: 97.7 kg

DRUGS (6)
  1. CHANTIX [Suspect]
     Indication: SMOKING CESSATION THERAPY
     Dates: start: 20070426
  2. EFFEXOR XR [Concomitant]
  3. CELEBREX [Concomitant]
  4. PREVACID [Concomitant]
  5. METOCLOPRAMIDE [Concomitant]
  6. DETROL LA [Concomitant]

REACTIONS (5)
  - ABNORMAL DREAMS [None]
  - CONSTIPATION [None]
  - DRUG INEFFECTIVE [None]
  - FATIGUE [None]
  - MIDDLE INSOMNIA [None]
